FAERS Safety Report 18559453 (Version 1)
Quarter: 2020Q4

REPORT INFORMATION
  Report Type: Spontaneous
  Country: US (occurrence: US)
  Receive Date: 20201128
  Receipt Date: 20201128
  Transmission Date: 20210114
  Serious: Yes (Other)
  Sender: FDA-Public Use
  Company Number: None

PATIENT
  Age: 66 Year
  Sex: Male
  Weight: 124.2 kg

DRUGS (9)
  1. IRON [Concomitant]
     Active Substance: IRON
  2. GABAPENTIN. [Concomitant]
     Active Substance: GABAPENTIN
  3. ADULT MULTIVITAMIN [Concomitant]
  4. SIMVASTATIN. [Concomitant]
     Active Substance: SIMVASTATIN
  5. TURMERIC [Concomitant]
     Active Substance: HERBALS\TURMERIC
  6. METOPROLOL. [Concomitant]
     Active Substance: METOPROLOL
  7. FISH OIL [Concomitant]
     Active Substance: FISH OIL
  8. CLINDAMYCIN. [Suspect]
     Active Substance: CLINDAMYCIN
     Indication: WOUND INFECTION
     Dosage: ?          QUANTITY:28 CAPSULE(S);?
     Route: 048
     Dates: start: 20201025, end: 20201102
  9. ASPIRIN. [Concomitant]
     Active Substance: ASPIRIN

REACTIONS (1)
  - Clostridium difficile infection [None]

NARRATIVE: CASE EVENT DATE: 20201027
